FAERS Safety Report 9722646 (Version 1)
Quarter: 2013Q4

REPORT INFORMATION
  Report Type: Spontaneous
  Country: US (occurrence: US)
  Receive Date: 20131202
  Receipt Date: 20131202
  Transmission Date: 20140711
  Serious: No
  Sender: FDA-Public Use
  Company Number: US-PFIZER INC-2013339323

PATIENT
  Age: 84 Year
  Sex: Female
  Weight: 48.53 kg

DRUGS (8)
  1. CELEBREX [Suspect]
     Indication: ARTHRITIS
     Dosage: UNK
     Route: 048
  2. CELEBREX [Suspect]
     Dosage: 200 MG, 2X/DAY
     Route: 048
     Dates: end: 201311
  3. CELEBREX [Suspect]
     Dosage: 100 MG, 2X/DAY
     Route: 048
     Dates: start: 201311, end: 20131123
  4. CELEBREX [Suspect]
     Dosage: 100 MG, 2X/DAY
     Route: 048
     Dates: start: 20131126
  5. PREDNISONE [Suspect]
     Dosage: UNK
  6. LANSOPRAZOLE [Concomitant]
     Dosage: 50 MG, 2X/DAY
  7. VYTORIN [Concomitant]
     Dosage: 10/40 MG, 2X/DAY
  8. SIMPONI [Concomitant]
     Dosage: UNK, MONTHLY

REACTIONS (5)
  - Gastric disorder [Not Recovered/Not Resolved]
  - Emotional disorder [Not Recovered/Not Resolved]
  - Anxiety [Not Recovered/Not Resolved]
  - Decreased appetite [Not Recovered/Not Resolved]
  - Abdominal pain upper [Not Recovered/Not Resolved]
